FAERS Safety Report 5969683-9 (Version None)
Quarter: 2008Q4

REPORT INFORMATION
  Report Type: 
  Country: None (occurrence: None)
  Receive Date: 20081126
  Receipt Date: 20081124
  Transmission Date: 20090506
  Serious: Yes (Life-Threatening, Hospitalization)
  Sender: FDA-Public Use
  Company Number: GB-ABBOTT-08P-167-0486253-00

PATIENT
  Sex: Male
  Weight: 165 kg

DRUGS (6)
  1. REDUCTIL [Suspect]
     Indication: OVERWEIGHT
     Route: 048
     Dates: start: 20060630, end: 20060811
  2. REDUCTIL [Suspect]
     Indication: DIABETES MELLITUS
  3. AMLODIPINE [Concomitant]
     Indication: HYPERTENSION
     Route: 048
  4. GLICAZIDE [Concomitant]
     Indication: TYPE 2 DIABETES MELLITUS
     Route: 048
  5. METFORMIN HCL [Concomitant]
     Indication: TYPE 2 DIABETES MELLITUS
     Route: 048
  6. IRBESARTAN [Concomitant]
     Indication: HYPERTENSION
     Dosage: 1 - 150 MILLIGRAM TABLET
     Route: 048

REACTIONS (1)
  - SUICIDE ATTEMPT [None]
